FAERS Safety Report 4541686-0 (Version None)
Quarter: 2004Q4

REPORT INFORMATION
  Report Type: 
  Country: None (occurrence: None)
  Receive Date: 20041227
  Receipt Date: 20041215
  Transmission Date: 20050328
  Serious: Yes (Hospitalization)
  Sender: FDA-Public Use
  Company Number: MAG 2004-0000321

PATIENT
  Age: 82 Year
  Sex: Female

DRUGS (1)
  1. OXYCODONE HCL [Suspect]
     Indication: CANCER PAIN
     Dosage: 10 MG, DAILY, ORAL
     Route: 048
     Dates: start: 20041201, end: 20041211

REACTIONS (1)
  - THROMBOCYTOPENIA [None]
